FAERS Safety Report 6124659-6 (Version None)
Quarter: 2009Q1

REPORT INFORMATION
  Report Type: 
  Country: None (occurrence: None)
  Receive Date: 20090319
  Receipt Date: 20090304
  Transmission Date: 20090719
  Serious: Yes (Other)
  Sender: FDA-Public Use
  Company Number: VE-GENENTECH-277281

PATIENT
  Age: 74 Year
  Sex: Male

DRUGS (2)
  1. MABTHERA [Suspect]
     Indication: NON-HODGKIN'S LYMPHOMA
     Route: 042
  2. HYDROCHLOROTHIAZIDE [Suspect]
     Indication: DIURETIC THERAPY
     Route: 065

REACTIONS (3)
  - DRUG INTERACTION [None]
  - ELECTROLYTE IMBALANCE [None]
  - PSYCHOMOTOR HYPERACTIVITY [None]
